FAERS Safety Report 19502258 (Version 1)
Quarter: 2021Q3

REPORT INFORMATION
  Report Type: Spontaneous
  Country: US (occurrence: US)
  Receive Date: 20210707
  Receipt Date: 20210707
  Transmission Date: 20211014
  Serious: Yes (Hospitalization)
  Sender: FDA-Public Use
  Company Number: None

PATIENT
  Age: 58 Year
  Sex: Female
  Weight: 106.3 kg

DRUGS (2)
  1. CYCLOPHOSPHAMIDE. [Suspect]
     Active Substance: CYCLOPHOSPHAMIDE
     Dates: end: 20210615
  2. DOXORUBICIN HYDROCHLORIDE. [Suspect]
     Active Substance: DOXORUBICIN HYDROCHLORIDE
     Dates: end: 20210615

REACTIONS (8)
  - Atrial fibrillation [None]
  - Febrile neutropenia [None]
  - Dehydration [None]
  - Toxicity to various agents [None]
  - Oropharyngeal pain [None]
  - Infection [None]
  - Chest discomfort [None]
  - Therapy interrupted [None]

NARRATIVE: CASE EVENT DATE: 20210624
